FAERS Safety Report 15474792 (Version 1)
Quarter: 2018Q4

REPORT INFORMATION
  Report Type: Spontaneous
  Country: FR (occurrence: FR)
  Receive Date: 20181008
  Receipt Date: 20181008
  Transmission Date: 20190205
  Serious: Yes (Hospitalization)
  Sender: FDA-Public Use
  Company Number: FR-BAYER-2018-187597

PATIENT
  Age: 71 Year
  Sex: Female
  Weight: 82.1 kg

DRUGS (15)
  1. PARACETAMOL [Concomitant]
     Active Substance: ACETAMINOPHEN
     Dosage: UNK
  2. ATORVASTATIN [Concomitant]
     Active Substance: ATORVASTATIN
     Dosage: UNK
  3. FLAGYL [Suspect]
     Active Substance: METRONIDAZOLE\METRONIDAZOLE HYDROCHLORIDE
     Indication: CHOLECYSTITIS
     Dosage: UNK
     Route: 048
  4. CIFLOX [Suspect]
     Active Substance: CIPROFLOXACIN
     Indication: CHOLECYSTITIS
     Dosage: 1000 MG, QD
     Route: 048
     Dates: start: 20180822, end: 20180831
  5. LOXEN (NICARDIPINE HYDROCHLORIDE) [Concomitant]
     Active Substance: NICARDIPINE HYDROCHLORIDE
     Dosage: UNK
  6. CALCIDOSE [Concomitant]
     Active Substance: CALCIUM CARBONATE
     Dosage: UNK
  7. HALDOL [Concomitant]
     Active Substance: HALOPERIDOL
     Dosage: UNK
  8. TRAMADOL. [Concomitant]
     Active Substance: TRAMADOL
     Dosage: UNK
  9. NORSET [Concomitant]
     Active Substance: MIRTAZAPINE
     Dosage: UNK
  10. PREVISCAN (FLUINDIONE) [Concomitant]
     Active Substance: FLUINDIONE
     Dosage: 20 MG, UNK
  11. LEPTICUR [Concomitant]
     Active Substance: TROPATEPINE HYDROCHLORIDE
     Dosage: UNK
  12. TRILEPTAL [Concomitant]
     Active Substance: OXCARBAZEPINE
     Dosage: UNK
  13. ROCEPHINE [Suspect]
     Active Substance: CEFTRIAXONE SODIUM
     Indication: CHOLECYSTITIS
     Dosage: 1 G, QD
     Route: 042
     Dates: start: 20180812, end: 20180822
  14. LANSOPRAZOLE. [Concomitant]
     Active Substance: LANSOPRAZOLE
     Dosage: UNK
  15. CARDENSIEL [Concomitant]
     Active Substance: BISOPROLOL FUMARATE
     Dosage: UNK

REACTIONS (2)
  - Neutropenia [Recovering/Resolving]
  - Leukopenia [Recovering/Resolving]

NARRATIVE: CASE EVENT DATE: 20180825
